FAERS Safety Report 9117071 (Version 1)
Quarter: 2013Q1

REPORT INFORMATION
  Report Type: Report from Study
  Country: US (occurrence: US)
  Receive Date: 20130225
  Receipt Date: 20130225
  Transmission Date: 20140127
  Serious: Yes (Hospitalization, Other)
  Sender: FDA-Public Use
  Company Number: US-BAXTER-2013BAX005931

PATIENT
  Sex: Female
  Weight: 68.18 kg

DRUGS (1)
  1. ARALAST NP [Suspect]
     Indication: ALPHA-1 ANTI-TRYPSIN DEFICIENCY
     Dosage: UNKNOWN
     Route: 042

REACTIONS (4)
  - Osteoarthritis [Recovering/Resolving]
  - Intraocular pressure test [Recovered/Resolved]
  - Glaucoma [Not Recovered/Not Resolved]
  - Arthralgia [Recovering/Resolving]
